FAERS Safety Report 7938451-0 (Version None)
Quarter: 2011Q4

REPORT INFORMATION
  Report Type: 
  Country: None (occurrence: None)
  Receive Date: 20111123
  Receipt Date: 20111117
  Transmission Date: 20120403
  Serious: Yes (Other)
  Sender: FDA-Public Use
  Company Number: US-GILEAD-2011-0047059

PATIENT
  Age: 62 Year
  Sex: Female

DRUGS (3)
  1. TYVASO [Concomitant]
  2. LETAIRIS [Suspect]
     Indication: PRODUCT USED FOR UNKNOWN INDICATION
     Dosage: 5 MG, UNK
     Route: 048
     Dates: start: 20100203
  3. REVATIO [Concomitant]

REACTIONS (2)
  - HYPOTENSION [None]
  - DIZZINESS [None]
